FAERS Safety Report 7705107-9 (Version None)
Quarter: 2011Q3

REPORT INFORMATION
  Report Type: 
  Country: None (occurrence: None)
  Receive Date: 20110824
  Receipt Date: 20110817
  Transmission Date: 20111222
  Serious: Yes (Hospitalization)
  Sender: FDA-Public Use
  Company Number: JP-BRISTOL-MYERS SQUIBB COMPANY-15979099

PATIENT
  Age: 61 Year
  Sex: Male

DRUGS (6)
  1. SALAZOSALFAPYRIDINE [Concomitant]
     Dates: start: 20110223
  2. REBAMIPIDE [Concomitant]
     Dates: start: 20091215
  3. FOLIC ACID [Concomitant]
     Dates: start: 20100121
  4. LOXOPROFEN SODIUM [Concomitant]
     Dates: start: 20100302
  5. ABATACEPT [Suspect]
     Indication: RHEUMATOID ARTHRITIS
     Dosage: 750MG/MONTH(19MAY10-06OCT10);IV 125MG/WK(19MAY10-27OCT10);SC
     Route: 058
     Dates: start: 20101102
  6. METHOTREXATE [Suspect]
     Indication: RHEUMATOID ARTHRITIS
     Dosage: 750MG/MONTH(19MAY10-6OCT10);IV WITH ABATACEPT ARM 125MG/WK(19MAY10-27OCT10);SC WITH ABATACEPT ARM
     Dates: start: 20100210

REACTIONS (1)
  - COLONIC POLYP [None]
